FAERS Safety Report 11747807 (Version 1)
Quarter: 2015Q4

REPORT INFORMATION
  Report Type: Spontaneous
  Country: US (occurrence: US)
  Receive Date: 20151117
  Receipt Date: 20151117
  Transmission Date: 20160304
  Serious: No
  Sender: FDA-Public Use
  Company Number: US-NOVOPROD-439948

PATIENT
  Age: 65 Year
  Sex: Male

DRUGS (1)
  1. NOVOLOG MIX 70/30 [Suspect]
     Active Substance: INSULIN ASPART
     Indication: PRODUCT USED FOR UNKNOWN INDICATION
     Dosage: 80 U BID
     Route: 058

REACTIONS (4)
  - Vision blurred [Unknown]
  - Blood glucose increased [Unknown]
  - Anxiety [Unknown]
  - Mood swings [Unknown]

NARRATIVE: CASE EVENT DATE: 20150201
